FAERS Safety Report 7269429-0 (Version None)
Quarter: 2011Q1

REPORT INFORMATION
  Report Type: 
  Country: None (occurrence: None)
  Receive Date: 20110124
  Receipt Date: 20110114
  Transmission Date: 20110831
  Serious: Yes (Hospitalization, Other)
  Sender: FDA-Public Use
  Company Number: JPI-P-013509

PATIENT
  Age: 49 Year
  Sex: Female
  Weight: 77.1115 kg

DRUGS (6)
  1. XYREM [Suspect]
     Indication: SOMNOLENCE
     Dosage: ORAL; 7.5 GM (3.75 GM, 2 IN 1 D),ORAL
     Route: 048
     Dates: start: 20090807
  2. XYREM [Suspect]
     Indication: NARCOLEPSY
     Dosage: ORAL; 7.5 GM (3.75 GM, 2 IN 1 D),ORAL
     Route: 048
     Dates: start: 20090807
  3. MEDICATION FOR ALLERGIES [Concomitant]
  4. VENLAFAXINE HYDROCHLORIDE [Concomitant]
  5. AMPHETAMINE AND DEXTROAMPHETAMINE [Concomitant]
  6. ESOMEPRAZOLE MAGNESIUM [Concomitant]

REACTIONS (5)
  - UTERINE ENLARGEMENT [None]
  - HOT FLUSH [None]
  - HYPERHIDROSIS [None]
  - MOOD SWINGS [None]
  - UTERINE LEIOMYOMA [None]
